FAERS Safety Report 9492042 (Version 2)
Quarter: 2013Q3

REPORT INFORMATION
  Report Type: Spontaneous
  Country: JP (occurrence: JP)
  Receive Date: 20130830
  Receipt Date: 20130903
  Transmission Date: 20140515
  Serious: Yes (Other)
  Sender: FDA-Public Use
  Company Number: PHHY2013JP094635

PATIENT
  Sex: Female

DRUGS (2)
  1. DIOVAN [Suspect]
     Dosage: 2 DF (40 MG), DAILY
     Route: 048
  2. DIOVAN [Suspect]
     Dosage: 3 DF (40MG), DAILY (120MG DAILY)
     Route: 048

REACTIONS (3)
  - Cardiac failure [Unknown]
  - Blood pressure increased [Unknown]
  - Drug ineffective [Unknown]
